FAERS Safety Report 4571254-6 (Version None)
Quarter: 2005Q1

REPORT INFORMATION
  Report Type: 
  Country: None (occurrence: None)
  Receive Date: 20050202
  Receipt Date: 20041029
  Transmission Date: 20050727
  Serious: Yes (Other)
  Sender: FDA-Public Use
  Company Number: US_0501110976

PATIENT
  Sex: Male

DRUGS (2)
  1. ZYPREXA [Suspect]
     Indication: BIPOLAR I DISORDER
     Dates: start: 19991130
  2. ZYPREXA [Suspect]
     Indication: SCHIZOPHRENIA
     Dates: start: 19991130

REACTIONS (2)
  - HEPATOCELLULAR DAMAGE [None]
  - RENAL DISORDER [None]
